FAERS Safety Report 24406649 (Version 1)
Quarter: 2024Q4

REPORT INFORMATION
  Report Type: Spontaneous
  Country: US (occurrence: US)
  Receive Date: 20241007
  Receipt Date: 20241007
  Transmission Date: 20250115
  Serious: Yes (Hospitalization)
  Sender: SANOFI AVENTIS
  Company Number: US-SA-2024SA285569

PATIENT
  Age: 71 Year
  Sex: Female
  Weight: 59.09 kg

DRUGS (1)
  1. DUPIXENT [Suspect]
     Active Substance: DUPILUMAB
     Indication: Dermatitis atopic
     Dosage: 300 MG, QOW
     Route: 058

REACTIONS (5)
  - Cellulitis [Unknown]
  - Ocular hyperaemia [Unknown]
  - Oral herpes [Unknown]
  - Eye pruritus [Unknown]
  - Dry eye [Unknown]

NARRATIVE: CASE EVENT DATE: 20240101
